FAERS Safety Report 23367761 (Version 2)
Quarter: 2024Q1

REPORT INFORMATION
  Report Type: Spontaneous
  Country: DE (occurrence: DE)
  Receive Date: 20240104
  Receipt Date: 20240110
  Transmission Date: 20240410
  Serious: Yes (Other)
  Sender: FDA-Public Use
  Company Number: DE-ABBVIE-5570141

PATIENT
  Sex: Female
  Weight: 2.68 kg

DRUGS (1)
  1. HUMIRA [Suspect]
     Active Substance: ADALIMUMAB
     Indication: Maternal exposure timing unspecified
     Route: 064

REACTIONS (10)
  - Ventricular septal defect [Unknown]
  - Hypokalaemia [Unknown]
  - Unevaluable event [Unknown]
  - Foetal exposure during pregnancy [Unknown]
  - Transient tachypnoea of the newborn [Unknown]
  - Hypoglycaemia [Unknown]
  - Developmental hip dysplasia [Unknown]
  - Sleep apnoea syndrome [Unknown]
  - Bradycardia [Unknown]
  - Premature baby [Unknown]
